FAERS Safety Report 9149312 (Version 1)
Quarter: 2013Q1

REPORT INFORMATION
  Report Type: Spontaneous
  Country: IT (occurrence: IT)
  Receive Date: 20130308
  Receipt Date: 20130308
  Transmission Date: 20140127
  Serious: Yes (Hospitalization)
  Sender: FDA-Public Use
  Company Number: IT-BRISTOL-MYERS SQUIBB COMPANY-17284696

PATIENT
  Age: 73 Year
  Sex: Male

DRUGS (14)
  1. COUMADIN TABS 5 MG [Suspect]
     Indication: ATRIAL FIBRILLATION
     Dosage: 1 DF:1 UNIT OF COUMADIN 5 MG TAB
     Route: 048
     Dates: start: 20120915, end: 20121001
  2. TICLOPIDINE HCL [Suspect]
     Indication: THROMBOSIS PROPHYLAXIS
     Route: 048
     Dates: start: 20120915, end: 20121001
  3. CLEXANE [Suspect]
     Indication: PULMONARY EMBOLISM
     Dosage: 1 DF:^6000 UI AXA/0,6ML SOLUTION FOR INJECTION
     Route: 058
     Dates: start: 20120601, end: 20121001
  4. ATORVASTATIN CALCIUM [Concomitant]
     Route: 048
  5. OMEPRAZOLE [Concomitant]
  6. METFORMIN HCL [Concomitant]
     Route: 048
  7. CONGESCOR [Concomitant]
     Indication: HYPERTENSION
     Dosage: 1 DF:1 UNIT OF  CONGESCOR ^25 MG TABLETS^
     Route: 048
  8. LASIX [Concomitant]
     Dosage: 1 DF: 2 UNITS OF LASIX ^25 MG TABLETS^
     Route: 048
  9. ALDACTONE [Concomitant]
     Dosage: 1 DF:1 UNIT OF  ALDACTONE ^25 MG TABLETS
     Route: 048
  10. GLICLAZIDE [Concomitant]
     Dosage: 1 DF: 2 UNITS OF GLICAZIDE DOC ^30 MG TABLETS
     Route: 048
  11. VICTOZA [Concomitant]
     Dosage: DOSAGE FORM:VICTOZA ^6MG/ML SOLUTION FOR INJECTION^
     Route: 058
  12. LANOXIN [Concomitant]
     Dosage: 1 DF:1 UNIT LANOXIN ^0.125 MG TABLETS^
     Route: 048
  13. RATACAND [Concomitant]
     Indication: HYPERTENSION
     Dosage: DOSAGE FORM:RATACAND ^8 MG TABLETS
     Route: 048
  14. NITRODERM TTS [Concomitant]
     Dosage: 1 DF: 2 UNITS OF  NITRODERM TTS ^10 MG/DIE PATCHES
     Route: 062

REACTIONS (4)
  - Diverticular perforation [Unknown]
  - Haematoma [Recovering/Resolving]
  - Gastroduodenal ulcer [Recovering/Resolving]
  - International normalised ratio decreased [Recovering/Resolving]
